FAERS Safety Report 23653945 (Version 1)
Quarter: 2024Q1

REPORT INFORMATION
  Report Type: Report from Study
  Country: EG (occurrence: EG)
  Receive Date: 20240320
  Receipt Date: 20240320
  Transmission Date: 20240410
  Serious: No
  Sender: FDA-Public Use
  Company Number: EG-SANDOZ-SDZ2024EG029901

PATIENT
  Age: 13 Year
  Sex: Female
  Weight: 47.5 kg

DRUGS (2)
  1. OMNITROPE [Suspect]
     Active Substance: SOMATROPIN
     Indication: Growth hormone deficiency
     Dosage: 1.2 MG, QD
     Route: 058
     Dates: start: 20220228
  2. OCTOZINC [Concomitant]
     Indication: Nutritional supplementation
     Dosage: 1 TAB, QD
     Route: 048
     Dates: start: 202302

REACTIONS (5)
  - Alopecia [Not Recovered/Not Resolved]
  - Expired device used [Unknown]
  - Multiple use of single-use product [Unknown]
  - Device mechanical issue [Unknown]
  - Incorrect dose administered [Unknown]

NARRATIVE: CASE EVENT DATE: 20240228
